FAERS Safety Report 23094469 (Version 1)
Quarter: 2023Q4

REPORT INFORMATION
  Report Type: Spontaneous
  Country: PL (occurrence: PL)
  Receive Date: 20231023
  Receipt Date: 20231023
  Transmission Date: 20240110
  Serious: Yes (Death, Hospitalization, Other)
  Sender: FDA-Public Use
  Company Number: PL-SANDOZ-SDZ2023PL045515

PATIENT
  Age: 64 Year
  Sex: Female

DRUGS (12)
  1. OMEPRAZOLE SODIUM [Suspect]
     Active Substance: OMEPRAZOLE SODIUM
     Indication: Abdominal pain upper
     Dosage: 40 MG
     Route: 065
  2. CHONDROITIN SULFATE (BOVINE) [Concomitant]
     Active Substance: CHONDROITIN SULFATE (BOVINE)
     Indication: Supplementation therapy
     Dosage: UNK
     Route: 065
  3. ACETAMINOPHEN\DIPHENHYDRAMINE CITRATE [Interacting]
     Active Substance: ACETAMINOPHEN\DIPHENHYDRAMINE CITRATE
     Indication: Osteoarthritis
     Dosage: N/A (NIGHT)
     Route: 065
  4. ACETAMINOPHEN\DIPHENHYDRAMINE CITRATE [Interacting]
     Active Substance: ACETAMINOPHEN\DIPHENHYDRAMINE CITRATE
     Indication: Arthralgia
  5. METOPROLOL [Interacting]
     Active Substance: METOPROLOL
     Indication: Atrial fibrillation
     Dosage: 50 MG, QD
     Route: 065
  6. OMEPRAZOLE [Interacting]
     Active Substance: OMEPRAZOLE
     Indication: Abdominal pain upper
     Dosage: 40 MG, QD (40 MG/24 H)
     Route: 065
  7. OMEPRAZOLE [Interacting]
     Active Substance: OMEPRAZOLE
     Indication: Abdominal pain lower
  8. ACETAMINOPHEN [Interacting]
     Active Substance: ACETAMINOPHEN
     Indication: Osteoarthritis
     Dosage: 1000 MG, BID (1000 MG, 2 X 24 H IN THE DAYTIME)
     Route: 065
  9. ACETAMINOPHEN [Interacting]
     Active Substance: ACETAMINOPHEN
     Indication: Arthralgia
     Dosage: UNK (COMBINATION OF PARACETAMOL WITH DIPHENHYDRAMINE BEFORE NIGHT)
     Route: 065
  10. PROPAFENONE [Interacting]
     Active Substance: PROPAFENONE
     Indication: Atrial fibrillation
     Dosage: 150 MG, BID (300 MG)
     Route: 065
  11. WARFARIN [Interacting]
     Active Substance: WARFARIN
     Indication: Anticoagulant therapy
     Dosage: UNK, VARIABLE DOSES, ADJUSTED TO INR VALUES
     Route: 065
  12. WARFARIN [Interacting]
     Active Substance: WARFARIN
     Indication: Coagulopathy

REACTIONS (5)
  - Subarachnoid haemorrhage [Fatal]
  - Drug interaction [Unknown]
  - Abdominal pain lower [Unknown]
  - Product use in unapproved indication [Unknown]
  - Medication error [Unknown]
